FAERS Safety Report 7784346-5 (Version None)
Quarter: 2011Q3

REPORT INFORMATION
  Report Type: 
  Country: None (occurrence: None)
  Receive Date: 20110928
  Receipt Date: 20110921
  Transmission Date: 20111222
  Serious: Yes (Other)
  Sender: FDA-Public Use
  Company Number: PHHO2011KR09801

PATIENT
  Sex: Female
  Weight: 49 kg

DRUGS (3)
  1. FTY [Suspect]
     Dosage: NO TREATMENT
     Dates: start: 20110429, end: 20110908
  2. FTY [Suspect]
     Indication: MULTIPLE SCLEROSIS
     Dosage: 0.5 MG, QD
     Route: 048
     Dates: start: 20110121, end: 20110428
  3. FTY [Suspect]
     Dosage: 0.5 MG, QD
     Route: 048
     Dates: start: 20110909

REACTIONS (3)
  - ERYTHEMA ANNULARE [None]
  - RASH [None]
  - VASCULITIS [None]
